FAERS Safety Report 23795561 (Version 2)
Quarter: 2024Q2

REPORT INFORMATION
  Report Type: Spontaneous
  Country: US (occurrence: US)
  Receive Date: 20240429
  Receipt Date: 20240502
  Transmission Date: 20240716
  Serious: No
  Sender: FDA-Public Use
  Company Number: US-PFIZER INC-202400092974

PATIENT
  Age: 5 Year
  Sex: Female
  Weight: 13.77 kg

DRUGS (1)
  1. GENOTROPIN [Suspect]
     Active Substance: SOMATROPIN
     Indication: Turner^s syndrome
     Dosage: 0.8 MG, 1X/DAY

REACTIONS (2)
  - Wrong technique in device usage process [Unknown]
  - Dizziness [Unknown]
